FAERS Safety Report 7097869-1 (Version None)
Quarter: 2010Q4

REPORT INFORMATION
  Report Type: 
  Country: None (occurrence: None)
  Receive Date: 20101112
  Receipt Date: 20101031
  Transmission Date: 20110411
  Serious: Yes (Death, Other)
  Sender: FDA-Public Use
  Company Number: RU-BAYER-201044277GPV

PATIENT
  Age: 25 Year
  Sex: Female

DRUGS (1)
  1. MIRENA [Suspect]
     Indication: PRODUCT USED FOR UNKNOWN INDICATION

REACTIONS (6)
  - ACNE [None]
  - COMPLETED SUICIDE [None]
  - DEPRESSION [None]
  - LOSS OF LIBIDO [None]
  - SLEEP DISORDER [None]
  - WEIGHT DECREASED [None]
